FAERS Safety Report 17276254 (Version 1)
Quarter: 2020Q1

REPORT INFORMATION
  Report Type: Report from Study
  Country: ES (occurrence: ES)
  Receive Date: 20200116
  Receipt Date: 20200116
  Transmission Date: 20200409
  Serious: Yes (Hospitalization)
  Sender: FDA-Public Use
  Company Number: ES-TEVA-2020-ES-1167159

PATIENT
  Age: 91 Year
  Sex: Female

DRUGS (7)
  1. ULCERAL 40 MG CAPSULAS DURAS GASTRORRESISTENTES [Concomitant]
     Route: 048
  2. EFFERALGAN [Concomitant]
     Active Substance: ACETAMINOPHEN
     Route: 048
  3. TORASEMIDA (2351A) [Suspect]
     Active Substance: TORSEMIDE
     Indication: HYPERTENSION
     Dosage: VARIABLE DOSE
     Route: 048
     Dates: start: 2009
  4. LORAZEPAM 5 MG 20 COMPRIMIDOS [Concomitant]
     Route: 048
  5. DILIBAN 75 MG/650 MG COMPRIMIDOS, 60 COMPRIMIDOS (BLISTER) [Concomitant]
     Active Substance: ACETAMINOPHEN\TRAMADOL HYDROCHLORIDE
     Route: 048
  6. LISINOPRIL 20 MG 28 COMPRIMIDOS [Interacting]
     Active Substance: LISINOPRIL
     Indication: HYPERTENSION
     Dosage: 1-0-0 (20 MG PER 24 HOURS)
     Route: 048
     Dates: start: 2010, end: 20190905
  7. ACTONEL SEMANAL 35 MG COMPRIMIDOS RECUBIERTOS CON PELICULA , 4 COMPRIM [Concomitant]
     Route: 048

REACTIONS (2)
  - Acute kidney injury [Recovered/Resolved]
  - Drug interaction [Unknown]

NARRATIVE: CASE EVENT DATE: 20190905
